FAERS Safety Report 7564671-3 (Version None)
Quarter: 2011Q2

REPORT INFORMATION
  Report Type: 
  Country: None (occurrence: None)
  Receive Date: 20110622
  Receipt Date: 20100813
  Transmission Date: 20111010
  Serious: Yes (Life-Threatening, Other)
  Sender: FDA-Public Use
  Company Number: US-MYLANLABS-2010S1015003

PATIENT
  Age: 33 Year
  Sex: Male

DRUGS (3)
  1. CLOZAPINE [Suspect]
     Indication: SCHIZOPHRENIA
     Route: 048
     Dates: start: 20090101, end: 20100812
  2. SERTRALINE HYDROCHLORIDE [Concomitant]
  3. LITHIUM [Concomitant]

REACTIONS (1)
  - AGRANULOCYTOSIS [None]
